FAERS Safety Report 5052105-2 (Version None)
Quarter: 2006Q3

REPORT INFORMATION
  Report Type: 
  Country: None (occurrence: None)
  Receive Date: 20060711
  Receipt Date: 20060628
  Transmission Date: 20061208
  Serious: Yes (Hospitalization)
  Sender: FDA-Public Use
  Company Number: GXKR2006GR03680

PATIENT
  Age: 70 Year
  Sex: Female

DRUGS (5)
  1. CIPROFLOXACIN [Suspect]
     Indication: PNEUMONIA
     Dosage: 800 MG, QD, INTRAVENOUS
     Route: 042
  2. OLANZAPINE [Suspect]
     Dosage: 10 MG, QD, UNKNOWN
  3. AZATHIOPRINE [Concomitant]
  4. VALSARTAN [Concomitant]
  5. FUROSEMIDE [Concomitant]

REACTIONS (4)
  - ANTIPSYCHOTIC DRUG LEVEL INCREASED [None]
  - DRUG INTERACTION INHIBITION [None]
  - ELECTROCARDIOGRAM QT PROLONGED [None]
  - VENTRICULAR EXTRASYSTOLES [None]
